FAERS Safety Report 7002237-4 (Version None)
Quarter: 2010Q3

REPORT INFORMATION
  Report Type: 
  Country: None (occurrence: None)
  Receive Date: 20100920
  Receipt Date: 20070612
  Transmission Date: 20110219
  Serious: No
  Sender: FDA-Public Use
  Company Number: US-ASTRAZENECA-2006UW12298

PATIENT
  Age: 349 Month
  Sex: Female
  Weight: 90.7 kg

DRUGS (20)
  1. SEROQUEL [Suspect]
     Indication: SCHIZOPHRENIA
     Dosage: 100-800 MG
     Route: 048
     Dates: start: 20000101, end: 20060101
  2. SEROQUEL [Suspect]
     Route: 048
     Dates: start: 20000101
  3. SEROQUEL [Suspect]
     Dosage: 100 TO 200 MG
     Route: 048
     Dates: start: 20010906
  4. SEROQUEL [Suspect]
     Route: 048
     Dates: start: 20050228
  5. SEROQUEL [Suspect]
     Route: 048
     Dates: start: 20050721
  6. SEROQUEL [Suspect]
     Route: 048
     Dates: start: 20060123, end: 20060401
  7. ABILIFY [Concomitant]
     Dates: start: 20070101
  8. HALDOL [Concomitant]
     Dosage: 5 MG TO 10 MG
     Dates: start: 19910101
  9. HALDOL [Concomitant]
     Route: 048
     Dates: start: 20060225
  10. RISPERDAL [Concomitant]
     Dosage: 1 - 3 MG
     Dates: start: 19940512, end: 19940609
  11. ZYPREXA [Concomitant]
     Dates: start: 19970101, end: 20000101
  12. SERZONE [Concomitant]
     Dates: start: 20001120
  13. ZOLOFT [Concomitant]
     Dates: start: 20001120
  14. LAMICTAL [Concomitant]
     Dates: start: 20001120
  15. BENZTROPINE MESYLATE [Concomitant]
     Dates: start: 20001120
  16. FLUPHENAZINE [Concomitant]
     Dates: start: 20000427
  17. GLUCOPHAGE [Concomitant]
     Indication: DIABETES MELLITUS
     Route: 048
  18. EFFEXOR-XR/EFFEXOR [Concomitant]
  19. EFFEXOR-XR/EFFEXOR [Concomitant]
     Route: 048
     Dates: start: 20060225
  20. BENADRYL [Concomitant]
     Dates: start: 20060225

REACTIONS (3)
  - DRUG EXPOSURE DURING PREGNANCY [None]
  - TYPE 2 DIABETES MELLITUS [None]
  - WEIGHT INCREASED [None]
